FAERS Safety Report 10220718 (Version 1)
Quarter: 2014Q2

REPORT INFORMATION
  Report Type: Spontaneous
  Country: US (occurrence: US)
  Receive Date: 20140606
  Receipt Date: 20140606
  Transmission Date: 20141212
  Serious: No
  Sender: FDA-Public Use
  Company Number: US-PFIZER INC-2014155498

PATIENT
  Age: 28 Year
  Sex: Male
  Weight: 77.1 kg

DRUGS (3)
  1. DILANTIN-125 [Suspect]
     Indication: CONVULSION
     Dosage: 200MG (2X100MG) IN MORNING AND 300MG (3X100MG) IN NIGHT
     Dates: start: 2008
  2. DILANTIN-125 [Suspect]
     Indication: EPILEPSY
  3. LAMICTAL [Concomitant]
     Dosage: UNK

REACTIONS (1)
  - Memory impairment [Not Recovered/Not Resolved]
